FAERS Safety Report 21183627 (Version 1)
Quarter: 2022Q3

REPORT INFORMATION
  Report Type: Spontaneous
  Country: US (occurrence: US)
  Receive Date: 20220808
  Receipt Date: 20220808
  Transmission Date: 20221026
  Serious: No
  Sender: FDA-Public Use
  Company Number: US-JNJFOC-20220760638

PATIENT
  Age: 67 Year
  Sex: Female

DRUGS (16)
  1. TYLENOL 8 HR ARTHRITIS PAIN [Suspect]
     Active Substance: ACETAMINOPHEN
     Indication: Fibromyalgia
     Route: 065
     Dates: start: 20220713
  2. SUTAB [Concomitant]
     Active Substance: MAGNESIUM SULFATE\POTASSIUM CHLORIDE\SODIUM SULFATE
     Indication: Colonoscopy
     Dosage: 2 X 12 TABLETS, 1X
     Route: 048
     Dates: start: 20220713, end: 20220714
  3. METFORMIN [Concomitant]
     Active Substance: METFORMIN HYDROCHLORIDE
     Indication: Product used for unknown indication
     Dosage: 1000 MG ONCE DAILY (MORNING)
     Route: 065
  4. LANTUS [Concomitant]
     Active Substance: INSULIN GLARGINE
     Indication: Product used for unknown indication
     Dosage: 17 UNITS TWICE DAILY MORNING AND NIGHT, 12 HOURS APART, DID NOT TAKE ON 13-JUL-2022 OR 14-JUL-2022 M
     Route: 065
  5. ELIQUIS [Concomitant]
     Active Substance: APIXABAN
     Indication: Product used for unknown indication
     Dosage: DID NOT TAKE NIGHT DOSE ON 13-JUL-2022 OR MORNING DOSE ON 14-JUL-2022
     Route: 065
  6. CARVEDILOL [Concomitant]
     Active Substance: CARVEDILOL
     Indication: Product used for unknown indication
     Dosage: DID NOT TAKE THE NIGHT DOSE ON 13-JUL-2022)
     Route: 065
  7. LISINOPRIL [Concomitant]
     Active Substance: LISINOPRIL
     Indication: Product used for unknown indication
     Route: 065
  8. DULOXETINE [Concomitant]
     Active Substance: DULOXETINE
     Indication: Product used for unknown indication
     Route: 065
  9. ROSUVASTATIN [Concomitant]
     Active Substance: ROSUVASTATIN
     Indication: Product used for unknown indication
     Dosage: 5 MG AT 2.5 MG THREE TIMES A WEEK (MONDAY, WEDNESDAY, FRIDAY, DID NOT TAKE DOSE ON 13-JUL-2022 BUT T
     Route: 065
  10. LEVOTHYROXINE [Concomitant]
     Active Substance: LEVOTHYROXINE
     Indication: Product used for unknown indication
     Dosage: MONDAY THROUGH FRIDAY ON AN EMPTY STOMACH (DID NOT TAKE ON 14-JUL-2022
     Route: 065
  11. TRULICITY [Concomitant]
     Active Substance: DULAGLUTIDE
     Indication: Product used for unknown indication
     Dosage: INJECT 1.5 MG ONCE A WEEK ON FRIDAYS
     Route: 065
  12. VITAMIN D3 [Concomitant]
     Active Substance: CHOLECALCIFEROL
     Indication: Product used for unknown indication
     Dosage: 50,000 UNITS ONCE A WEEK NORMALLY ON TUESDAYS
     Route: 065
  13. COENZYME Q10 [Concomitant]
     Active Substance: DIETARY SUPPLEMENT\UBIDECARENONE
     Indication: Product used for unknown indication
     Dosage: (MONDAY, WEDNESDAY, FRIDAY MORNINGS, DID NOT TAKE ON 13-JUL-2022 OR ON THE MORNING OF 14-JUL-2022)
     Route: 065
  14. GLUCOSAMINE HYDROCHLORIDE;METHYLSULFONYLMETHANE [Concomitant]
     Indication: Product used for unknown indication
     Dosage: MFR. PURITAN^S PRIDE) 1500 MG AT ONE TABLET ORALLY 2X/DAY (LUNCH AND DINNER, DID NOT TAKE ON 13-JUL-
     Route: 048
  15. FLONASE [Concomitant]
     Active Substance: FLUTICASONE PROPIONATE
     Indication: Product used for unknown indication
     Dosage: 50 G AT 1 SPRAY PER NOSTRIL 2X/DAY MORNING AND EVENING, DID NOT TAKE ON 14-JUL-2022
     Route: 045
  16. TRAMADOL [Concomitant]
     Active Substance: TRAMADOL
     Indication: Fibromyalgia
     Dosage: 50 MG AT 50 MG, 2X/DAY (7:00 AM, 7:00 PM)
     Route: 065

REACTIONS (3)
  - Vomiting [Unknown]
  - Incorrect dose administered [Unknown]
  - Inappropriate schedule of product administration [Unknown]

NARRATIVE: CASE EVENT DATE: 20220713
